FAERS Safety Report 10258246 (Version 1)
Quarter: 2014Q2

REPORT INFORMATION
  Report Type: Spontaneous
  Country: US (occurrence: US)
  Receive Date: 20140625
  Receipt Date: 20140625
  Transmission Date: 20141212
  Serious: No
  Sender: FDA-Public Use
  Company Number: US-BAYER-2014-094946

PATIENT
  Age: 73 Year
  Sex: Male
  Weight: 75 kg

DRUGS (1)
  1. ALEVE TABLET [Suspect]
     Indication: ANALGESIC THERAPY
     Dosage: 1 DF, EVERY 8 HOURS
     Route: 048
     Dates: start: 2013, end: 20140622

REACTIONS (3)
  - Blood sodium decreased [Recovered/Resolved]
  - Incorrect drug administration duration [None]
  - Blood sodium decreased [Recovered/Resolved]
